FAERS Safety Report 5987552-5 (Version None)
Quarter: 2008Q4

REPORT INFORMATION
  Report Type: 
  Country: None (occurrence: None)
  Receive Date: 20081209
  Receipt Date: 20081117
  Transmission Date: 20090506
  Serious: Yes (Death)
  Sender: FDA-Public Use
  Company Number: FR-SANOFI-SYNTHELABO-A02200803431

PATIENT
  Sex: Male

DRUGS (4)
  1. LEUCOVORIN CALCIUM [Suspect]
     Indication: COLON CANCER
     Route: 041
     Dates: start: 20080423, end: 20080423
  2. FLUOROURACIL [Suspect]
     Indication: COLON CANCER
     Route: 040
     Dates: start: 20080423, end: 20080423
  3. FLUOROURACIL [Suspect]
     Route: 041
     Dates: start: 20080423, end: 20080423
  4. ELOXATIN [Suspect]
     Indication: COLON CANCER
     Route: 041
     Dates: start: 20080423, end: 20080423

REACTIONS (3)
  - PYREXIA [None]
  - QUADRIPLEGIA [None]
  - SPEECH DISORDER [None]
